FAERS Safety Report 6498794-7 (Version None)
Quarter: 2009Q4

REPORT INFORMATION
  Report Type: 
  Country: None (occurrence: None)
  Receive Date: 20091215
  Receipt Date: 20091211
  Transmission Date: 20100525
  Serious: Yes (Life-Threatening)
  Sender: FDA-Public Use
  Company Number: DE-ASTRAZENECA-2009SE31466

PATIENT
  Age: 35 Year
  Sex: Female

DRUGS (2)
  1. SEROQUEL [Suspect]
     Indication: BORDERLINE PERSONALITY DISORDER
     Route: 048
  2. SEROQUEL [Suspect]
     Dosage: 450 MG TABLET+300 MG TABLET SR DAILY
     Route: 048

REACTIONS (2)
  - COMA [None]
  - PULMONARY EMBOLISM [None]
